FAERS Safety Report 7568394-6 (Version None)
Quarter: 2011Q2

REPORT INFORMATION
  Report Type: 
  Country: None (occurrence: None)
  Receive Date: 20110623
  Receipt Date: 20110613
  Transmission Date: 20111010
  Serious: Yes (Other)
  Sender: FDA-Public Use
  Company Number: IE-ROCHE-782246

PATIENT
  Sex: Male

DRUGS (3)
  1. CELLCEPT [Suspect]
     Route: 065
     Dates: end: 20110608
  2. CELLCEPT [Interacting]
     Route: 065
     Dates: start: 20110609
  3. ALCOHOL [Interacting]
     Route: 065

REACTIONS (2)
  - MUSCLE TWITCHING [None]
  - DRUG INTERACTION [None]
